FAERS Safety Report 6473948-4 (Version None)
Quarter: 2009Q4

REPORT INFORMATION
  Report Type: 
  Country: None (occurrence: None)
  Receive Date: 20091204
  Receipt Date: 20091105
  Transmission Date: 20100525
  Serious: No
  Sender: FDA-Public Use
  Company Number: A0815376A

PATIENT
  Sex: Female

DRUGS (3)
  1. LAMICTAL [Suspect]
     Dosage: 25MG PER DAY
     Route: 048
     Dates: start: 20091028
  2. XANAX [Concomitant]
  3. KLONOPIN [Concomitant]

REACTIONS (2)
  - HERPES ZOSTER [None]
  - RASH [None]
